FAERS Safety Report 24570878 (Version 1)
Quarter: 2024Q4

REPORT INFORMATION
  Report Type: Spontaneous
  Country: CN (occurrence: CN)
  Receive Date: 20241101
  Receipt Date: 20241101
  Transmission Date: 20250114
  Serious: Yes (Other)
  Sender: ASTELLAS
  Company Number: CN-ASTELLAS-2024-AER-015745

PATIENT
  Age: 5 Decade
  Sex: Male

DRUGS (1)
  1. CRESEMBA [Suspect]
     Active Substance: ISAVUCONAZONIUM SULFATE
     Indication: Aspergillus infection
     Dosage: AT UNKNOWN DOSING REGIMEN (REPORTED AS PER LABEL),
     Route: 048

REACTIONS (2)
  - Liver injury [Unknown]
  - Transaminases increased [Unknown]
